FAERS Safety Report 21102502 (Version 2)
Quarter: 2022Q3

REPORT INFORMATION
  Report Type: Report from Study
  Country: US (occurrence: US)
  Receive Date: 20220719
  Receipt Date: 20220810
  Transmission Date: 20221027
  Serious: Yes (Hospitalization)
  Sender: FDA-Public Use
  Company Number: US-SEATTLE GENETICS-2022SGN06581

PATIENT
  Age: 27 Year
  Sex: Male
  Weight: 136 kg

DRUGS (5)
  1. BRENTUXIMAB VEDOTIN [Suspect]
     Active Substance: BRENTUXIMAB VEDOTIN
     Indication: Hodgkin^s disease
     Dosage: 1.2 MG/KG (TOTAL DOSE ADMINISTERED 120 MG)
     Route: 065
     Dates: start: 20220513, end: 20220706
  2. DOXORUBICIN [Suspect]
     Active Substance: DOXORUBICIN
     Indication: Hodgkin^s disease
     Dosage: 25 MG/M2 (TOTAL DOSE ADMINISTERED 68 MG)
     Route: 065
     Dates: start: 20220513, end: 20220613
  3. VINBLASTINE [Suspect]
     Active Substance: VINBLASTINE
     Indication: Hodgkin^s disease
     Dosage: 6 MG/M2 (TOTAL DOSE ADMINISTERED 16 MG)
     Route: 065
     Dates: start: 20220513, end: 20220613
  4. DACARBAZINE [Suspect]
     Active Substance: DACARBAZINE
     Indication: Hodgkin^s disease
     Dosage: 375 MG/M2 (TOTAL DOSE ADMINISTERD 1016 MG)
     Route: 065
     Dates: start: 20220513, end: 20220613
  5. NIVOLUMAB [Suspect]
     Active Substance: NIVOLUMAB
     Indication: Hodgkin^s disease
     Route: 065

REACTIONS (3)
  - Embolism [Recovered/Resolved with Sequelae]
  - Meningitis [Recovered/Resolved with Sequelae]
  - Soft tissue infection [Recovered/Resolved with Sequelae]

NARRATIVE: CASE EVENT DATE: 20220619
